FAERS Safety Report 11870666 (Version 1)
Quarter: 2015Q4

REPORT INFORMATION
  Report Type: Spontaneous
  Country: US (occurrence: None)
  Receive Date: 20151224
  Receipt Date: 20151224
  Transmission Date: 20160305
  Serious: Yes (Hospitalization)
  Sender: FDA-Public Use
  Company Number: None

PATIENT
  Age: 45 Year
  Sex: Female

DRUGS (3)
  1. SULFAMETHOXAZOLE/TRIMETHOPRIM [Suspect]
     Active Substance: SULFAMETHOXAZOLE\TRIMETHOPRIM
     Indication: INFECTION
     Dosage: 800/160MG
     Route: 048
     Dates: start: 20150401, end: 20150829
  2. ASPIRIN. [Concomitant]
     Active Substance: ASPIRIN
  3. HYDROXYCHOLOROQUINE [Concomitant]

REACTIONS (7)
  - Nausea [None]
  - Photosensitivity reaction [None]
  - Drug reaction with eosinophilia and systemic symptoms [None]
  - Malaise [None]
  - Hyperpyrexia [None]
  - Liver injury [None]
  - Rash pruritic [None]

NARRATIVE: CASE EVENT DATE: 20150829
